FAERS Safety Report 8465006-4 (Version None)
Quarter: 2012Q2

REPORT INFORMATION
  Report Type: 
  Country: None (occurrence: None)
  Receive Date: 20120618
  Receipt Date: 20120604
  Transmission Date: 20120825
  Serious: Yes (Congenital Anomaly)
  Sender: FDA-Public Use
  Company Number: ADR-UNK-052

PATIENT
  Age: 1 Day
  Sex: Male
  Weight: 3.36 kg

DRUGS (3)
  1. LAMIVUDINE + ZIDOVUDINE [Suspect]
     Indication: ACQUIRED IMMUNODEFICIENCY SYNDROME
     Dosage: 1 COURSE 2 TABLETS/DAY ORAL
     Route: 048
     Dates: start: 20110622
  2. FOSAMPRENAVIR CALCIUM (LEXIVA, FOS) [Concomitant]
  3. NORVIR [Concomitant]

REACTIONS (3)
  - MATERNAL DRUGS AFFECTING FOETUS [None]
  - HYDROCELE [None]
  - CONGENITAL ANOMALY [None]
